FAERS Safety Report 6185469-7 (Version None)
Quarter: 2009Q2

REPORT INFORMATION
  Report Type: 
  Country: None (occurrence: None)
  Receive Date: 20090511
  Receipt Date: 20090429
  Transmission Date: 20091009
  Serious: Yes (Hospitalization)
  Sender: FDA-Public Use
  Company Number: PHHY2009ES16728

PATIENT
  Age: 53 Year
  Sex: Male

DRUGS (2)
  1. CYCLOSPORINE [Suspect]
     Indication: RENAL TRANSPLANT
  2. PREDNISOLONE [Suspect]
     Indication: RENAL TRANSPLANT

REACTIONS (6)
  - ABSCESS INTESTINAL [None]
  - ACTINOMYCOSIS [None]
  - DIVERTICULUM [None]
  - MASS [None]
  - PYREXIA [None]
  - SURGERY [None]
